FAERS Safety Report 18643552 (Version 1)
Quarter: 2020Q4

REPORT INFORMATION
  Report Type: Spontaneous
  Country: FR (occurrence: FR)
  Receive Date: 20201221
  Receipt Date: 20201221
  Transmission Date: 20210114
  Serious: Yes (Hospitalization, Other)
  Sender: FDA-Public Use
  Company Number: FR-PFIZER INC-2020495331

PATIENT
  Sex: Female
  Weight: 61 kg

DRUGS (14)
  1. ANDROCUR [Suspect]
     Active Substance: CYPROTERONE ACETATE
     Indication: HYPERANDROGENISM
     Dosage: 0.5 DF (50 MG), 7 DAYS PER MONTH
     Route: 065
     Dates: start: 199806, end: 1999
  2. CYPROTERONE [Suspect]
     Active Substance: CYPROTERONE
     Dosage: 50 MG, UNKNOWN
     Route: 065
     Dates: start: 20110606
  3. CYPROTERONE [Suspect]
     Active Substance: CYPROTERONE
     Dosage: 50 MG, UNKNOWN
     Route: 065
  4. CYCLEANE [Suspect]
     Active Substance: DESOGESTREL\ETHINYL ESTRADIOL
     Indication: HYPERANDROGENISM
     Dosage: UNK
     Route: 065
     Dates: start: 2000, end: 2004
  5. ESTROGEN [Suspect]
     Active Substance: ESTROGENS
     Dosage: UNK
     Route: 065
  6. MIRENA [Suspect]
     Active Substance: LEVONORGESTREL
     Indication: HYPERANDROGENISM
     Dosage: UNK
     Route: 015
     Dates: start: 20040901, end: 20050913
  7. CYPROTERONE [Suspect]
     Active Substance: CYPROTERONE
     Dosage: 50 MG, UNKNOWN
     Route: 065
     Dates: start: 20110404
  8. ANDROCUR [Suspect]
     Active Substance: CYPROTERONE ACETATE
     Dosage: UNK
     Route: 065
     Dates: start: 2000, end: 2004
  9. ANDROCUR [Suspect]
     Active Substance: CYPROTERONE ACETATE
     Dosage: 0.5 DF, 20 DAYS PER MONTH
     Route: 065
     Dates: start: 20120828, end: 20130826
  10. OROMONE [Suspect]
     Active Substance: ESTRADIOL
     Indication: HYPERANDROGENISM
     Dosage: 1 MG (7 DAYS PER MONTH)
     Route: 065
     Dates: start: 200507, end: 201108
  11. TRINORDIOL [Suspect]
     Active Substance: ETHINYL ESTRADIOL\LEVONORGESTREL
     Dosage: UNK
     Route: 065
  12. ANDROCUR [Suspect]
     Active Substance: CYPROTERONE ACETATE
     Dosage: 0.5 DF, SEVEN DAYS PER MONTH
     Route: 065
     Dates: start: 200507, end: 201108
  13. ANDROCUR [Suspect]
     Active Substance: CYPROTERONE ACETATE
     Dosage: 0.5 DF, 20 DAYS PER MONTH
     Route: 065
     Dates: end: 201506
  14. CYPROTERONE [Suspect]
     Active Substance: CYPROTERONE
     Indication: HYPERANDROGENISM
     Dosage: UNK
     Route: 065
     Dates: start: 20090615

REACTIONS (18)
  - Scar [Unknown]
  - Sleep disorder [Unknown]
  - Haemorrhage [Unknown]
  - Pain [Unknown]
  - Muscle tightness [Unknown]
  - Tension headache [Unknown]
  - Haematoma [Unknown]
  - Post procedural oedema [Unknown]
  - Skin lesion [Unknown]
  - Headache [Unknown]
  - Cognitive disorder [Unknown]
  - Epilepsy [Unknown]
  - Squamous cell carcinoma [Unknown]
  - Skin depigmentation [Unknown]
  - Meningioma [Unknown]
  - Facial paralysis [Unknown]
  - Pain of skin [Unknown]
  - Fatigue [Unknown]

NARRATIVE: CASE EVENT DATE: 20140820
